FAERS Safety Report 12279814 (Version 1)
Quarter: 2016Q2

REPORT INFORMATION
  Report Type: Report from Study
  Country: US (occurrence: US)
  Receive Date: 20160418
  Receipt Date: 20160418
  Transmission Date: 20160815
  Serious: Yes (Death)
  Sender: FDA-Public Use
  Company Number: US-ACTELION-A-US2016-134549

PATIENT
  Age: 77 Year
  Sex: Male

DRUGS (5)
  1. ADCIRCA [Concomitant]
     Active Substance: TADALAFIL
  2. PREDNISONE. [Concomitant]
     Active Substance: PREDNISONE
  3. PROBIOTIC [Concomitant]
     Active Substance: PROBIOTICS NOS
  4. MACITENTAN [Suspect]
     Active Substance: MACITENTAN
     Indication: PULMONARY ARTERIAL HYPERTENSION
     Dosage: 10 MG, QD
     Route: 048
     Dates: start: 20150117
  5. MULTIVITAMIN [Concomitant]
     Active Substance: VITAMINS

REACTIONS (1)
  - Death [Fatal]

NARRATIVE: CASE EVENT DATE: 20160224
